FAERS Safety Report 24393350 (Version 1)
Quarter: 2024Q4

REPORT INFORMATION
  Report Type: Spontaneous
  Country: US (occurrence: US)
  Receive Date: 20241003
  Receipt Date: 20241003
  Transmission Date: 20250115
  Serious: No
  Sender: HARMONY BIOSCIENCES
  Company Number: US-HARMONY BIOSCIENCES-2023HMY01889

PATIENT

DRUGS (4)
  1. WAKIX [Suspect]
     Active Substance: PITOLISANT HYDROCHLORIDE
     Indication: Hypersomnia
     Dosage: 8.9 MG, 1X/DAY
     Dates: start: 20231007, end: 202310
  2. WAKIX [Suspect]
     Active Substance: PITOLISANT HYDROCHLORIDE
     Indication: Hypersomnia
     Dosage: 17.8 MG, 1X/DAY
     Dates: start: 202310, end: 202310
  3. DEXTROAMPHETAMINE AND AMPHETAMINE [Concomitant]
     Dosage: 20 MG, 3X/DAY
  4. IBUPROFEN [Concomitant]
     Active Substance: IBUPROFEN
     Dosage: 600 MG, AS NEEDED

REACTIONS (5)
  - Somnolence [Unknown]
  - Nausea [Unknown]
  - Depression [Not Recovered/Not Resolved]
  - Headache [Unknown]
  - Off label use [Not Recovered/Not Resolved]

NARRATIVE: CASE EVENT DATE: 20231001
